FAERS Safety Report 12130167 (Version 1)
Quarter: 2016Q1

REPORT INFORMATION
  Report Type: Spontaneous
  Country: US (occurrence: None)
  Receive Date: 20160229
  Receipt Date: 20160229
  Transmission Date: 20160526
  Serious: Yes (Hospitalization)
  Sender: FDA-Public Use
  Company Number: None

PATIENT
  Age: 60 Year
  Sex: Male
  Weight: 107.6 kg

DRUGS (1)
  1. WARFARIN [Suspect]
     Active Substance: WARFARIN
     Indication: DEEP VEIN THROMBOSIS
     Route: 048
     Dates: start: 20120723

REACTIONS (7)
  - Haemorrhage [None]
  - Fall [None]
  - Orthostatic hypotension [None]
  - Haematocrit decreased [None]
  - Haemoglobin decreased [None]
  - Haematoma [None]
  - Back injury [None]

NARRATIVE: CASE EVENT DATE: 20160106
